FAERS Safety Report 13075997 (Version 1)
Quarter: 2016Q4

REPORT INFORMATION
  Report Type: Spontaneous
  Country: US (occurrence: US)
  Receive Date: 20161230
  Receipt Date: 20161230
  Transmission Date: 20170207
  Serious: No
  Sender: FDA-Public Use
  Company Number: US-ASTRAZENECA-2016SF35577

PATIENT
  Age: 627 Month
  Sex: Female
  Weight: 109.8 kg

DRUGS (5)
  1. HIGH BLOOD PRESSURE MEDICATION [Concomitant]
     Active Substance: UNSPECIFIED INGREDIENT
  2. METFORMIN [Concomitant]
     Active Substance: METFORMIN HYDROCHLORIDE
     Indication: DIABETES MELLITUS
     Route: 048
  3. GLIMEPIRIDE. [Concomitant]
     Active Substance: GLIMEPIRIDE
     Indication: DIABETES MELLITUS
     Dosage: 2.0MG UNKNOWN
  4. EYE DROPS [Concomitant]
     Active Substance: TETRAHYDROZOLINE HYDROCHLORIDE
     Indication: DRY EYE
  5. BYDUREON [Suspect]
     Active Substance: EXENATIDE
     Indication: GLYCOSYLATED HAEMOGLOBIN INCREASED
     Route: 058
     Dates: start: 201303

REACTIONS (9)
  - Oropharyngeal pain [Unknown]
  - Dyspnoea [Unknown]
  - Injection site mass [Unknown]
  - Blood glucose decreased [Unknown]
  - Injection site pain [Unknown]
  - Dysphagia [Unknown]
  - Dysphonia [Unknown]
  - Lymphadenopathy [Unknown]
  - Vision blurred [Unknown]

NARRATIVE: CASE EVENT DATE: 201303
